FAERS Safety Report 12137728 (Version 2)
Quarter: 2016Q1

REPORT INFORMATION
  Report Type: Spontaneous
  Country: US (occurrence: US)
  Receive Date: 20160302
  Receipt Date: 20160309
  Transmission Date: 20160526
  Serious: Yes (Other)
  Sender: FDA-Public Use
  Company Number: US-LPDUSPRD-20160100

PATIENT
  Age: 60 Year
  Sex: Male
  Weight: 74.75 kg

DRUGS (9)
  1. TRANEXAMIC ACID INJECTION(0517-0960-10) [Suspect]
     Active Substance: TRANEXAMIC ACID
     Dosage: 1 GM X 2 DOSES OVER }10 MIN
     Route: 042
     Dates: start: 20160201, end: 20160201
  2. CEFAZOLIN [Concomitant]
     Active Substance: CEFAZOLIN
     Dosage: 2 GM X 1 DOSE
     Route: 042
     Dates: start: 20160201, end: 20160201
  3. MIDAZOLAM [Concomitant]
     Active Substance: MIDAZOLAM\MIDAZOLAM HYDROCHLORIDE
     Dosage: 2 MG X 1 DOSE
     Route: 042
     Dates: start: 20160201, end: 20160201
  4. NORCO GEQ [Concomitant]
     Dosage: 1 TAB EVERY 4H AS NEEDED
     Route: 048
  5. CELECOXIB. [Concomitant]
     Active Substance: CELECOXIB
     Dosage: 200 MG X 1 DOSE
     Route: 048
     Dates: start: 20160201, end: 20160201
  6. VANCOMYCIN [Concomitant]
     Active Substance: VANCOMYCIN
     Dosage: 1500 MG X 1 DOSE
     Route: 042
     Dates: start: 20160201, end: 20160201
  7. DOCUSATE [Concomitant]
     Active Substance: DOCUSATE
     Dosage: 100 MG TWICE DAILY
     Route: 048
  8. OMPRAZOLE [Concomitant]
     Active Substance: OMEPRAZOLE
     Dosage: 200 MG DAILY
     Route: 048
  9. ASPIRIN EC [Concomitant]
     Active Substance: ASPIRIN
     Dosage: 325 MG TWICE DAILY
     Route: 048

REACTIONS (2)
  - Nausea [Unknown]
  - Hyperhidrosis [Unknown]

NARRATIVE: CASE EVENT DATE: 20160201
